FAERS Safety Report 10025022 (Version 1)
Quarter: 2014Q1

REPORT INFORMATION
  Report Type: Report from Study
  Country: NZ (occurrence: NZ)
  Receive Date: 20140320
  Receipt Date: 20140320
  Transmission Date: 20141002
  Serious: Yes (Life-Threatening, Hospitalization)
  Sender: FDA-Public Use
  Company Number: NZ-SA-2014SA033581

PATIENT
  Age: 68 Year
  Sex: Male
  Weight: 68.6 kg

DRUGS (4)
  1. FLUDARABINE PHOSPHATE [Suspect]
     Indication: CHRONIC LYMPHOCYTIC LEUKAEMIA
     Dosage: DATE OF LAST DOSE PRIOR TO EVENT: 21-AUG-2009
     Route: 048
     Dates: start: 20090817
  2. RITUXIMAB [Suspect]
     Indication: CHRONIC LYMPHOCYTIC LEUKAEMIA
     Dosage: DOSAGE FORM: INFUSION?ON DAY 1?DATE OF LAST DOSE PRIOR TO EVENT: 17-AUG-2009
     Route: 042
     Dates: start: 20090817, end: 20090817
  3. CYCLOPHOSPHAMIDE [Suspect]
     Indication: CHRONIC LYMPHOCYTIC LEUKAEMIA
     Dosage: DOSE: 250/300 MG, ALTERNATING DOSE FOR 5 DAYS.?DATE OF LAST DOSE PRIOR TO EVENT: 21-AUG-2009
     Route: 048
     Dates: start: 20090817
  4. ARIPIPRAZOLE [Concomitant]
     Dates: start: 20100212, end: 20100826

REACTIONS (1)
  - Myocardial infarction [Recovered/Resolved]
